FAERS Safety Report 21216451 (Version 1)
Quarter: 2022Q3

REPORT INFORMATION
  Report Type: Spontaneous
  Country: US (occurrence: None)
  Receive Date: 20220815
  Receipt Date: 20220815
  Transmission Date: 20221027
  Serious: Yes (Disabling)
  Sender: FDA-Public Use
  Company Number: None

PATIENT
  Sex: Female

DRUGS (2)
  1. DUPIXENT [Suspect]
     Active Substance: DUPILUMAB
     Dates: start: 20210401, end: 20220401
  2. ALLEGRA [Concomitant]
     Active Substance: FEXOFENADINE HYDROCHLORIDE

REACTIONS (15)
  - Eye swelling [None]
  - Eye discharge [None]
  - Lacrimation increased [None]
  - Ocular hyperaemia [None]
  - Dry eye [None]
  - Eye irritation [None]
  - Visual impairment [None]
  - Vision blurred [None]
  - Vitreous floaters [None]
  - Eczema [None]
  - Disease recurrence [None]
  - Eye pruritus [None]
  - Eye injury [None]
  - Asthenopia [None]
  - Eye pain [None]
